FAERS Safety Report 5908609-0 (Version None)
Quarter: 2008Q4

REPORT INFORMATION
  Report Type: 
  Country: None (occurrence: None)
  Receive Date: 20081001
  Receipt Date: 20080916
  Transmission Date: 20090506
  Serious: Yes (Death)
  Sender: FDA-Public Use
  Company Number: 08-218

PATIENT
  Sex: Male

DRUGS (13)
  1. FAZACLO ODT 100 MG [Suspect]
     Dosage: 300 MG DAILY PO
     Route: 048
     Dates: start: 20080118, end: 20080527
  2. DEPAKOTE [Concomitant]
  3. LISINOPRIL [Concomitant]
  4. NAPROXEN [Concomitant]
  5. ZETIA [Concomitant]
  6. POTASSIUM CHLORIDE [Concomitant]
  7. METOPROLOL 50 MG [Concomitant]
  8. SIMVASTATIN [Concomitant]
  9. ALLOPURINOL [Concomitant]
  10. GLYCOPYRROLATE 2 MG [Concomitant]
  11. FOLIC ACID [Concomitant]
  12. BUPROPION ER 300 MG [Concomitant]
  13. ACTOS [Concomitant]

REACTIONS (1)
  - MYOCARDIAL INFARCTION [None]
